FAERS Safety Report 24804537 (Version 1)
Quarter: 2025Q1

REPORT INFORMATION
  Report Type: Spontaneous
  Country: US (occurrence: US)
  Receive Date: 20250103
  Receipt Date: 20250103
  Transmission Date: 20250408
  Serious: Yes (Hospitalization, Other)
  Sender: CHEPLAPHARM
  Company Number: US-CHEPLA-2024016151

PATIENT
  Age: 76 Year
  Sex: Female
  Weight: 72.599 kg

DRUGS (25)
  1. HYDROXYUREA [Suspect]
     Active Substance: HYDROXYUREA
     Indication: Platelet disorder
  2. TREPROSTINIL SODIUM [Suspect]
     Active Substance: TREPROSTINIL SODIUM
     Indication: Lung disorder
     Route: 055
  3. METOPROLOL [Suspect]
     Active Substance: METOPROLOL
     Indication: Hypotension
  4. VITAMINS [Concomitant]
     Active Substance: VITAMINS
  5. HYDROXYZINE HYDROCHLORIDE [Concomitant]
     Active Substance: HYDROXYZINE HYDROCHLORIDE
  6. POTASSIUM CHLORIDE [Concomitant]
     Active Substance: POTASSIUM CHLORIDE
  7. ROSUVASTATIN CALCIUM [Concomitant]
     Active Substance: ROSUVASTATIN CALCIUM
  8. ALLOPURINOL [Concomitant]
     Active Substance: ALLOPURINOL
  9. DIETARY SUPPLEMENT [Concomitant]
     Active Substance: DIETARY SUPPLEMENT
  10. COENZYME Q10 [Concomitant]
     Active Substance: DIETARY SUPPLEMENT\UBIDECARENONE
  11. ELIQUIS [Concomitant]
     Active Substance: APIXABAN
  12. SILDENAFIL CITRATE [Concomitant]
     Active Substance: SILDENAFIL CITRATE
  13. VITAMIN D3 [Concomitant]
     Active Substance: CHOLECALCIFEROL
  14. METOPROLOL SUCCINATE [Concomitant]
     Active Substance: METOPROLOL SUCCINATE
  15. OPSUMIT [Concomitant]
     Active Substance: MACITENTAN
     Dates: end: 2024
  16. MAGNESIUM [Concomitant]
     Active Substance: MAGNESIUM
  17. IRON [Concomitant]
     Active Substance: IRON
  18. BUMETANIDE [Concomitant]
     Active Substance: BUMETANIDE
  19. NM-6603 [Concomitant]
     Active Substance: NM-6603
  20. OMEPRAZOLE [Concomitant]
     Active Substance: OMEPRAZOLE
  21. TRIAMCINOLONE ACETONIDE [Concomitant]
     Active Substance: TRIAMCINOLONE ACETONIDE
  22. VITAMIN C [Concomitant]
     Active Substance: ASCORBIC ACID
  23. JAKAFI [Concomitant]
     Active Substance: RUXOLITINIB
  24. INFED [Concomitant]
     Active Substance: IRON DEXTRAN
  25. Hair, Skin and Nails [Concomitant]

REACTIONS (16)
  - Atrial fibrillation [Unknown]
  - Pulmonary hypertension [Unknown]
  - Cardiac failure congestive [Unknown]
  - Thrombocytopenia [Unknown]
  - Epistaxis [Unknown]
  - Hypotension [Unknown]
  - Constipation [Unknown]
  - Heart rate increased [Unknown]
  - Blood iron decreased [Unknown]
  - Skin ulcer [Unknown]
  - Platelet disorder [Unknown]
  - Feeling cold [Unknown]
  - Fatigue [Unknown]
  - Peripheral swelling [Unknown]
  - Diarrhoea [Unknown]
  - Dehydration [Unknown]

NARRATIVE: CASE EVENT DATE: 20241127
